FAERS Safety Report 9671695 (Version 1)
Quarter: 2013Q4

REPORT INFORMATION
  Report Type: Spontaneous
  Country: US (occurrence: None)
  Receive Date: 20131105
  Receipt Date: 20131105
  Transmission Date: 20140711
  Serious: No
  Sender: FDA-Public Use
  Company Number: None

PATIENT
  Age: 32 Year
  Sex: Female

DRUGS (2)
  1. AVELOX [Suspect]
     Indication: ASTHMA
     Route: 048
     Dates: start: 20131028, end: 20131030
  2. AVELOX [Suspect]
     Indication: BRONCHITIS
     Route: 048
     Dates: start: 20131028, end: 20131030

REACTIONS (3)
  - Paraesthesia [None]
  - Hypoaesthesia [None]
  - Muscular weakness [None]
